FAERS Safety Report 8305987-2 (Version None)
Quarter: 2012Q2

REPORT INFORMATION
  Report Type: 
  Country: None (occurrence: None)
  Receive Date: 20120423
  Receipt Date: 20120411
  Transmission Date: 20120825
  Serious: No
  Sender: FDA-Public Use
  Company Number: US-BAYER-2012-039094

PATIENT
  Sex: Male

DRUGS (1)
  1. STAXYN [Suspect]
     Indication: ERECTILE DYSFUNCTION
     Dosage: 1 DF, UNK

REACTIONS (5)
  - DIZZINESS [None]
  - DYSSTASIA [None]
  - ERECTILE DYSFUNCTION [None]
  - CHEST PAIN [None]
  - FEELING DRUNK [None]
